FAERS Safety Report 19153293 (Version 1)
Quarter: 2021Q2

REPORT INFORMATION
  Report Type: Spontaneous
  Country: SE (occurrence: SE)
  Receive Date: 20210419
  Receipt Date: 20210419
  Transmission Date: 20210717
  Serious: Yes (Life-Threatening, Other)
  Sender: FDA-Public Use
  Company Number: IT-SUNOVION-2021SUN001407

PATIENT

DRUGS (8)
  1. IKTORIVIL [Concomitant]
     Active Substance: CLONAZEPAM
     Dosage: UNK
  2. OLANZAPINE. [Concomitant]
     Active Substance: OLANZAPINE
     Dosage: UNK
  3. PAROXETINE. [Concomitant]
     Active Substance: PAROXETINE
     Dosage: UNK
  4. ENALAPRIL [Concomitant]
     Active Substance: ENALAPRIL
     Dosage: UNK
  5. TROMBYL [Concomitant]
     Active Substance: ASPIRIN
     Dosage: UNK
  6. LATUDA [Suspect]
     Active Substance: LURASIDONE HYDROCHLORIDE
     Indication: SCHIZOPHRENIA
     Dosage: ^75MG 1X1^
     Route: 048
     Dates: start: 20201218, end: 20210312
  7. MIANSERIN [Concomitant]
     Active Substance: MIANSERIN
     Dosage: UNK
  8. STESOLID [Concomitant]
     Active Substance: DIAZEPAM
     Dosage: AS REQUIRED

REACTIONS (2)
  - Suicide attempt [Unknown]
  - Suicidal ideation [Unknown]

NARRATIVE: CASE EVENT DATE: 202012
